FAERS Safety Report 8635089 (Version 3)
Quarter: 2012Q4

REPORT INFORMATION
  Report Type: Spontaneous
  Country: CA (occurrence: None)
  Receive Date: 20120612
  Receipt Date: 20120925
  Transmission Date: 20130627
  Serious: Yes (Other)
  Sender: FDA-Public Use
  Company Number: 2012-003161

PATIENT
  Age: 72 Year
  Sex: Female
  Weight: 68 kg

DRUGS (7)
  1. ACTONEL [Suspect]
     Indication: OSTEOPOROSIS
     Route: 048
     Dates: start: 2002, end: 201201
  2. PAXIL (PAROXETINE HYDROCHLORIDE) [Concomitant]
  3. DIOVAN HCT (HYDROCHLOROTHIAZIDE, VALSARTAN) [Concomitant]
  4. LIPITOR (ATORVASTATIN CALCIUM) [Concomitant]
  5. PARIET (RABEPRAZOLE SODIUM) [Concomitant]
  6. VITAMIN D /00318501/ (COLECALCIFEROL) [Concomitant]
  7. CALCIUM (CALCIUM) [Concomitant]

REACTIONS (12)
  - Gastrooesophageal reflux disease [None]
  - Abdominal pain upper [None]
  - Asthenia [None]
  - Burning sensation [None]
  - Cough [None]
  - Diarrhoea [None]
  - Eye irritation [None]
  - Headache [None]
  - Nausea [None]
  - Oropharyngeal pain [None]
  - Pyrexia [None]
  - Vomiting [None]
